FAERS Safety Report 8825898 (Version 1)
Quarter: 2012Q4

REPORT INFORMATION
  Report Type: 
  Country: US (occurrence: US)
  Receive Date: 20121005
  Receipt Date: 20121005
  Transmission Date: 20130627
  Serious: Yes (Hospitalization, Other)
  Sender: FDA-Public Use
  Company Number: US-ROCHE-1130809

PATIENT
  Sex: Male
  Weight: 72.19 kg

DRUGS (5)
  1. RITUXAN [Suspect]
     Indication: CHRONIC LYMPHOCYTIC LEUKAEMIA
     Dosage: 730 mg in 730 cc NORMAL SALINE
     Route: 065
     Dates: start: 20001117
  2. COUMADIN [Concomitant]
  3. DILANTIN [Concomitant]
     Route: 065
  4. IVIG [Concomitant]
     Route: 042
  5. BENADRYL [Concomitant]
     Route: 042

REACTIONS (5)
  - Pulmonary embolism [Unknown]
  - Cold sweat [Recovered/Resolved]
  - Dyspnoea [Recovered/Resolved]
  - Chills [Unknown]
  - Hypertension [Recovered/Resolved]
